FAERS Safety Report 4356215-4 (Version None)
Quarter: 2004Q2

REPORT INFORMATION
  Report Type: 
  Country: None (occurrence: None)
  Receive Date: 20040511
  Receipt Date: 20040322
  Transmission Date: 20050107
  Serious: Yes (Hospitalization)
  Sender: FDA-Public Use
  Company Number: FR-MERCK-0403FRA00087

PATIENT
  Age: 87 Year
  Sex: Male

DRUGS (2)
  1. FOSAMAX [Suspect]
     Indication: OSTEOPOROSIS
     Route: 048
     Dates: start: 20030901, end: 20040314
  2. CALCIUM (UNSPECIFIED) [Concomitant]
     Route: 048

REACTIONS (1)
  - MYASTHENIA GRAVIS [None]
